FAERS Safety Report 7926705-3 (Version None)
Quarter: 2011Q4

REPORT INFORMATION
  Report Type: 
  Country: None (occurrence: None)
  Receive Date: 20111116
  Receipt Date: 20111102
  Transmission Date: 20120403
  Serious: Yes (Death, Life-Threatening, Hospitalization, Disabling)
  Sender: FDA-Public Use
  Company Number: 2009AL003508

PATIENT
  Age: 79 Year
  Sex: Female
  Weight: 61.2356 kg

DRUGS (39)
  1. DIGOXIN [Suspect]
     Indication: ATRIAL FIBRILLATION
     Dosage: 0.25 MG;1X;IV PUSH
     Route: 042
     Dates: start: 20061125, end: 20070325
  2. DIGOXIN [Suspect]
     Indication: SICK SINUS SYNDROME
     Dosage: 0.25 MG;1X;IV PUSH
     Route: 042
     Dates: start: 20061125, end: 20070325
  3. DIGOXIN [Suspect]
     Indication: VENTRICULAR DYSFUNCTION
     Dosage: 0.25 MG;1X;IV PUSH
     Route: 042
     Dates: start: 20061125, end: 20070325
  4. MULTI-VITAMIN [Concomitant]
  5. LABETALOL HCL [Concomitant]
  6. NORMODYNE [Concomitant]
  7. TRANDATE [Concomitant]
  8. ZISTRIL [Concomitant]
  9. VITAMIN K TAB [Concomitant]
  10. VERMOX [Concomitant]
  11. COREG [Concomitant]
  12. CYMBALTA [Concomitant]
  13. ACCUPRIL [Concomitant]
  14. LOVENOX [Concomitant]
  15. PRINIVIL [Concomitant]
  16. XANAX [Concomitant]
  17. MAGNESIUM [Concomitant]
  18. ZOLOFT [Concomitant]
  19. LORTAB [Concomitant]
  20. IBUPROFEN [Concomitant]
  21. ANTIVERT [Concomitant]
  22. CORDARONE [Concomitant]
  23. MECLIZINE [Concomitant]
  24. POTASSIUM [Concomitant]
  25. CARDURA [Concomitant]
  26. ENALAPRIL MALEATE [Concomitant]
  27. MONOPRIL [Concomitant]
  28. ZESTORETIC [Concomitant]
  29. DEMADEX [Concomitant]
  30. CHLORIDE [Concomitant]
  31. ASPIRIN [Concomitant]
  32. GLUCOPHAGE [Concomitant]
  33. HYTRIN [Concomitant]
  34. PACERONE [Concomitant]
  35. COUMADIN [Concomitant]
  36. HEPARIN [Concomitant]
  37. VITAMIN B-12 [Concomitant]
  38. ZITHROMAX [Concomitant]
  39. LEVAQUIN [Concomitant]

REACTIONS (164)
  - ECONOMIC PROBLEM [None]
  - MYOCARDIAL INFARCTION [None]
  - LOSS OF CONSCIOUSNESS [None]
  - ANXIETY [None]
  - HEADACHE [None]
  - VERTIGO [None]
  - OSTEOARTHRITIS [None]
  - CAROTID BRUIT [None]
  - SOMNOLENCE [None]
  - ASTHENIA [None]
  - DECREASED APPETITE [None]
  - LEFT VENTRICULAR DYSFUNCTION [None]
  - ARRHYTHMIA SUPRAVENTRICULAR [None]
  - RIGHT VENTRICULAR HYPERTROPHY [None]
  - DIASTOLIC DYSFUNCTION [None]
  - CORONARY ARTERY STENOSIS [None]
  - BREATH SOUNDS ABNORMAL [None]
  - GALLOP RHYTHM PRESENT [None]
  - ASCITES [None]
  - CREATININE RENAL CLEARANCE DECREASED [None]
  - PNEUMONIA [None]
  - CATARACT [None]
  - HYPERGLYCAEMIA [None]
  - MALAISE [None]
  - PARAESTHESIA [None]
  - CRYING [None]
  - BACK PAIN [None]
  - DYSARTHRIA [None]
  - BALANCE DISORDER [None]
  - CHEST PAIN [None]
  - HYPOTENSION [None]
  - ARTHRITIS [None]
  - UNEVALUABLE EVENT [None]
  - SPEECH DISORDER [None]
  - OEDEMA [None]
  - BLOOD GLUCOSE DECREASED [None]
  - LEFT ATRIAL DILATATION [None]
  - AORTIC DISORDER [None]
  - BLOOD CREATINE PHOSPHOKINASE MB INCREASED [None]
  - BLOOD POTASSIUM DECREASED [None]
  - RHONCHI [None]
  - ALANINE AMINOTRANSFERASE DECREASED [None]
  - ALBUMIN GLOBULIN RATIO DECREASED [None]
  - FATIGUE [None]
  - OEDEMA PERIPHERAL [None]
  - CARDIOGENIC SHOCK [None]
  - VITAMIN B12 DEFICIENCY [None]
  - HYPOTHYROIDISM [None]
  - SYNCOPE [None]
  - COORDINATION ABNORMAL [None]
  - CARDIAC VALVE DISEASE [None]
  - DIABETES MELLITUS [None]
  - CAROTID ARTERY OCCLUSION [None]
  - CAROTID ARTERY DISEASE [None]
  - DEEP VEIN THROMBOSIS [None]
  - GENERALISED OEDEMA [None]
  - RIGHT VENTRICULAR DYSFUNCTION [None]
  - DRUG INTOLERANCE [None]
  - LYMPHOEDEMA [None]
  - PERIPHERAL VASCULAR DISORDER [None]
  - UNRESPONSIVE TO STIMULI [None]
  - OXYGEN SATURATION DECREASED [None]
  - MITRAL VALVE CALCIFICATION [None]
  - AORTIC VALVE INCOMPETENCE [None]
  - ELECTROCARDIOGRAM POOR R-WAVE PROGRESSION [None]
  - AORTIC DILATATION [None]
  - ISCHAEMIC CARDIOMYOPATHY [None]
  - CARBON DIOXIDE INCREASED [None]
  - BLOOD POTASSIUM INCREASED [None]
  - BLOOD IRON DECREASED [None]
  - HELICOBACTER TEST POSITIVE [None]
  - LEFT VENTRICULAR HYPERTROPHY [None]
  - CAROTID ARTERY STENOSIS [None]
  - RESTLESSNESS [None]
  - ACTIVITIES OF DAILY LIVING IMPAIRED [None]
  - FALL [None]
  - HEART RATE ABNORMAL [None]
  - PERIPHERAL PULSE DECREASED [None]
  - DRY GANGRENE [None]
  - AORTIC VALVE CALCIFICATION [None]
  - BUNDLE BRANCH BLOCK LEFT [None]
  - VENTRICULAR HYPOKINESIA [None]
  - DYSPEPSIA [None]
  - HIATUS HERNIA [None]
  - MULTIPLE INJURIES [None]
  - CONGESTIVE CARDIOMYOPATHY [None]
  - AORTIC STENOSIS [None]
  - GAIT DISTURBANCE [None]
  - INSOMNIA [None]
  - SWELLING FACE [None]
  - HYPERTENSIVE HEART DISEASE [None]
  - ABDOMINAL SYMPTOM [None]
  - SKIN ULCER [None]
  - FAECALOMA [None]
  - ELECTROCARDIOGRAM CHANGE [None]
  - ABDOMINAL TENDERNESS [None]
  - MUSCULAR WEAKNESS [None]
  - HAEMOGLOBIN DECREASED [None]
  - RIGHT ATRIAL HYPERTROPHY [None]
  - PULMONARY GRANULOMA [None]
  - CORONARY ARTERY OCCLUSION [None]
  - BLOOD CALCIUM DECREASED [None]
  - BLOOD UREA NITROGEN/CREATININE RATIO INCREASED [None]
  - HEPATOMEGALY [None]
  - DECUBITUS ULCER [None]
  - PULMONARY HYPERTENSION [None]
  - PROTEIN TOTAL DECREASED [None]
  - CARBON DIOXIDE DECREASED [None]
  - PROTEIN URINE PRESENT [None]
  - REFLUX GASTRITIS [None]
  - GASTRITIS EROSIVE [None]
  - GASTRIC HAEMORRHAGE [None]
  - BLOOD CHOLESTEROL INCREASED [None]
  - CONDITION AGGRAVATED [None]
  - BLOOD PRESSURE INCREASED [None]
  - ECCHYMOSIS [None]
  - TRICUSPID VALVE INCOMPETENCE [None]
  - CARDIAC FAILURE CONGESTIVE [None]
  - NAUSEA [None]
  - MENTAL DISORDER [None]
  - HYPOAESTHESIA [None]
  - DEPRESSION [None]
  - CHEST DISCOMFORT [None]
  - AGEUSIA [None]
  - HYPOKALAEMIA [None]
  - LACUNAR INFARCTION [None]
  - TACHYCARDIA [None]
  - CEREBRAL ATROPHY [None]
  - MITRAL VALVE STENOSIS [None]
  - BLOOD ALBUMIN DECREASED [None]
  - BLOOD CREATINE INCREASED [None]
  - COLONIC POLYP [None]
  - ACQUIRED DIAPHRAGMATIC EVENTRATION [None]
  - WOUND [None]
  - DIZZINESS [None]
  - CAROTID ARTERY INSUFFICIENCY [None]
  - DYSPNOEA EXERTIONAL [None]
  - TRANSIENT ISCHAEMIC ATTACK [None]
  - BLISTER [None]
  - CEREBRAL ARTERY EMBOLISM [None]
  - CEREBRAL ARTERIOSCLEROSIS [None]
  - EXOSTOSIS [None]
  - PULMONARY VALVE STENOSIS [None]
  - EXCORIATION [None]
  - INTERMITTENT CLAUDICATION [None]
  - BLOOD CHLORIDE DECREASED [None]
  - BLOOD BILIRUBIN INCREASED [None]
  - CEREBRAL SMALL VESSEL ISCHAEMIC DISEASE [None]
  - ATELECTASIS [None]
  - ATRIAL FIBRILLATION [None]
  - MITRAL VALVE INCOMPETENCE [None]
  - EMOTIONAL DISORDER [None]
  - UPPER RESPIRATORY TRACT INFECTION [None]
  - ABDOMINAL PAIN [None]
  - TROPONIN INCREASED [None]
  - REVERSIBLE ISCHAEMIC NEUROLOGICAL DEFICIT [None]
  - VENTRICULAR ARRHYTHMIA [None]
  - WEIGHT FLUCTUATION [None]
  - CARDIOMEGALY [None]
  - COLLATERAL CIRCULATION [None]
  - BLOOD UREA INCREASED [None]
  - ANAEMIA [None]
  - BRAIN NATRIURETIC PEPTIDE INCREASED [None]
  - GASTROOESOPHAGEAL REFLUX DISEASE [None]
